FAERS Safety Report 8233693-1 (Version None)
Quarter: 2012Q1

REPORT INFORMATION
  Report Type: 
  Country: None (occurrence: None)
  Receive Date: 20120323
  Receipt Date: 20120323
  Transmission Date: 20120608
  Serious: Yes (Other)
  Sender: FDA-Public Use
  Company Number: None

PATIENT
  Age: 63 Year
  Sex: Female
  Weight: 65.4 kg

DRUGS (12)
  1. ATIVAN [Concomitant]
  2. MAGIC MOUTHWASH [Concomitant]
  3. VICODIN [Concomitant]
  4. AMIFOSTINE [Suspect]
     Indication: DRY MOUTH
     Dosage: 500MG SC
     Route: 058
  5. RADIATION THERAPY [Concomitant]
  6. PREVIDENT [Concomitant]
  7. CISPLATIN [Concomitant]
  8. EMEND [Concomitant]
  9. COMPAZINE [Concomitant]
  10. ZOFRAN [Concomitant]
  11. CLARITIN [Concomitant]
  12. AMBIEN [Concomitant]

REACTIONS (3)
  - ERYTHEMA [None]
  - RASH [None]
  - NAUSEA [None]
